FAERS Safety Report 12178193 (Version 1)
Quarter: 2016Q1

REPORT INFORMATION
  Report Type: Spontaneous
  Country: US (occurrence: US)
  Receive Date: 20160315
  Receipt Date: 20160315
  Transmission Date: 20160526
  Serious: Yes (Life-Threatening, Other)
  Sender: FDA-Public Use
  Company Number: US-FRESENIUS KABI-FK201601261

PATIENT
  Age: 32 Year
  Sex: Female
  Weight: 74.91 kg

DRUGS (4)
  1. XYLOCAINE [Concomitant]
     Active Substance: LIDOCAINE HYDROCHLORIDE
     Indication: SCAR
  2. CYANOCOBALAMIN INJECTION, USP [Suspect]
     Active Substance: CYANOCOBALAMIN
     Indication: NERVE INJURY
     Route: 050
     Dates: start: 20160308, end: 20160308
  3. CYANOCOBALAMIN INJECTION, USP [Suspect]
     Active Substance: CYANOCOBALAMIN
     Indication: SCAR
  4. XYLOCAINE [Concomitant]
     Active Substance: LIDOCAINE HYDROCHLORIDE
     Indication: NERVE INJURY
     Route: 050
     Dates: start: 20160308, end: 20160308

REACTIONS (3)
  - Product use issue [Unknown]
  - Anaphylactic reaction [Not Recovered/Not Resolved]
  - Accidental exposure to product [Not Recovered/Not Resolved]
